FAERS Safety Report 7725305-8 (Version None)
Quarter: 2011Q3

REPORT INFORMATION
  Report Type: 
  Country: None (occurrence: None)
  Receive Date: 20110902
  Receipt Date: 20110825
  Transmission Date: 20111222
  Serious: No
  Sender: FDA-Public Use
  Company Number: US-BIOGENIDEC-2011BI032981

PATIENT
  Sex: Female

DRUGS (3)
  1. AVONEX [Suspect]
     Indication: MULTIPLE SCLEROSIS
     Route: 030
     Dates: start: 19981101
  2. AVONEX [Suspect]
     Route: 030
  3. BLOOD PRESSURE MEDICINE (NOS) [Concomitant]
     Indication: HYPERTENSION

REACTIONS (3)
  - MIGRAINE [None]
  - BALANCE DISORDER [None]
  - COGNITIVE DISORDER [None]
